FAERS Safety Report 6226370-X (Version None)
Quarter: 2009Q2

REPORT INFORMATION
  Report Type: 
  Country: None (occurrence: None)
  Receive Date: 20090612
  Receipt Date: 20090602
  Transmission Date: 20091009
  Serious: Yes (Other)
  Sender: FDA-Public Use
  Company Number: PT-JNJFOC-20090602171

PATIENT
  Sex: Female

DRUGS (2)
  1. REMICADE [Suspect]
     Indication: CROHN'S DISEASE
     Route: 042
  2. METHYLPREDNISOLONE [Concomitant]
     Dosage: 4 OR 8 MG

REACTIONS (3)
  - CONNECTIVE TISSUE DISORDER [None]
  - RHEUMATOID ARTHRITIS [None]
  - TRANSAMINASES INCREASED [None]
